FAERS Safety Report 6373297-9 (Version None)
Quarter: 2009Q3

REPORT INFORMATION
  Report Type: 
  Country: None (occurrence: None)
  Receive Date: 20090924
  Receipt Date: 20090521
  Transmission Date: 20100115
  Serious: Yes (Other)
  Sender: FDA-Public Use
  Company Number: US-ASTRAZENECA-2009UW08759

PATIENT
  Age: 335 Month
  Sex: Male

DRUGS (2)
  1. SEROQUEL [Suspect]
     Indication: DEPRESSION
     Dosage: 25 MG TO 100 MG
     Route: 048
     Dates: start: 20011201, end: 20040101
  2. ZYPREXA [Concomitant]
     Dates: start: 20020101

REACTIONS (1)
  - PANCREATITIS ACUTE [None]
